FAERS Safety Report 8300141-2 (Version None)
Quarter: 2012Q2

REPORT INFORMATION
  Report Type: 
  Country: None (occurrence: None)
  Receive Date: 20120420
  Receipt Date: 20120416
  Transmission Date: 20120825
  Serious: No
  Sender: FDA-Public Use
  Company Number: US-PFIZER INC-2012094169

PATIENT
  Sex: Female

DRUGS (2)
  1. EFFEXOR XR [Suspect]
     Dosage: UNK
  2. LYRICA [Suspect]
     Indication: NEUROPATHY PERIPHERAL

REACTIONS (1)
  - NEUROPATHY PERIPHERAL [None]
